FAERS Safety Report 8013889-4 (Version None)
Quarter: 2011Q4

REPORT INFORMATION
  Report Type: 
  Country: None (occurrence: None)
  Receive Date: 20111229
  Receipt Date: 20111220
  Transmission Date: 20120403
  Serious: Yes (Other)
  Sender: FDA-Public Use
  Company Number: US-ROCHE-1022751

PATIENT

DRUGS (3)
  1. MULTIVITAMIN [Concomitant]
     Route: 048
  2. OMALIZUMAB [Suspect]
     Indication: ASTHMA
     Dosage: LAST DOSE PRIOR TO ONSET OF EVENT 27/JUL/2009
     Route: 064
     Dates: start: 20031201
  3. LAMISIL [Concomitant]
     Indication: DERMATITIS DIAPER

REACTIONS (2)
  - MATERNAL EXPOSURE TIMING UNSPECIFIED [None]
  - CROUP INFECTIOUS [None]
